FAERS Safety Report 5726253-5 (Version None)
Quarter: 2008Q2

REPORT INFORMATION
  Report Type: 
  Country: None (occurrence: None)
  Receive Date: 20080430
  Receipt Date: 20080423
  Transmission Date: 20081010
  Serious: Yes (Other)
  Sender: FDA-Public Use
  Company Number: S08-USA-01554-01

PATIENT
  Age: 83 Year
  Sex: Female

DRUGS (5)
  1. NAMENDA [Suspect]
     Indication: DEMENTIA
     Dosage: 20 MG QHS PO
     Route: 048
  2. PLAVIX [Concomitant]
  3. FOLTX (FOLACIN/CYANOCOBALAMIN/PYRIDOXINE) [Concomitant]
  4. LOVASTATIN [Concomitant]
  5. ASPIRIN [Concomitant]

REACTIONS (4)
  - BLOOD IRON DECREASED [None]
  - FULL BLOOD COUNT DECREASED [None]
  - MUSCULAR WEAKNESS [None]
  - TREMOR [None]
